FAERS Safety Report 8854805 (Version 2)
Quarter: 2012Q4

REPORT INFORMATION
  Report Type: 
  Country: JP (occurrence: JP)
  Receive Date: 20121023
  Receipt Date: 20121221
  Transmission Date: 20130627
  Serious: Yes (Life-Threatening, Other)
  Sender: FDA-Public Use
  Company Number: PHHY2012JP094333

PATIENT
  Age: 69 Year
  Sex: Male

DRUGS (2)
  1. TEGRETOL [Suspect]
     Indication: CONVULSION
     Dosage: 400mg daily
     Route: 048
     Dates: start: 20120623, end: 20120723
  2. KEPPRA [Concomitant]
     Indication: CONVULSION
     Dosage: 1000 mg, UNK
     Route: 048
     Dates: start: 20120625, end: 20120726

REACTIONS (6)
  - Drug reaction with eosinophilia and systemic symptoms [Recovered/Resolved]
  - Erythema multiforme [Recovered/Resolved]
  - Face oedema [Recovered/Resolved with Sequelae]
  - Skin exfoliation [Recovered/Resolved with Sequelae]
  - Psoas abscess [Recovered/Resolved with Sequelae]
  - Spondylitis [Recovered/Resolved with Sequelae]
